FAERS Safety Report 25360555 (Version 1)
Quarter: 2025Q2

REPORT INFORMATION
  Report Type: Spontaneous
  Country: US (occurrence: None)
  Receive Date: 20250527
  Receipt Date: 20250527
  Transmission Date: 20250717
  Serious: Yes (Life-Threatening, Hospitalization)
  Sender: HARMAN FINOCHEM
  Company Number: US-Harman-000101

PATIENT
  Age: 13 Year
  Sex: Female

DRUGS (2)
  1. METFORMIN [Suspect]
     Active Substance: METFORMIN HYDROCHLORIDE
     Indication: Product used for unknown indication
     Route: 048
  2. SERTRALINE [Concomitant]
     Active Substance: SERTRALINE HYDROCHLORIDE

REACTIONS (10)
  - Metabolic acidosis [Recovering/Resolving]
  - Intentional overdose [Unknown]
  - Suicide attempt [Unknown]
  - Metabolic disorder [Unknown]
  - Ventricular dysfunction [Recovered/Resolved]
  - Pancreatitis [Unknown]
  - Coronary artery dilatation [Recovered/Resolved]
  - Toxicity to various agents [Unknown]
  - Acute kidney injury [Unknown]
  - Cardiotoxicity [Recovered/Resolved]
